FAERS Safety Report 23409489 (Version 2)
Quarter: 2024Q2

REPORT INFORMATION
  Report Type: Spontaneous
  Country: ES (occurrence: ES)
  Receive Date: 20240117
  Receipt Date: 20240409
  Transmission Date: 20240716
  Serious: Yes (Hospitalization)
  Sender: FDA-Public Use
  Company Number: ES-AEMPS-1426470

PATIENT
  Age: 90 Year
  Sex: Male

DRUGS (2)
  1. SERTRALINE [Interacting]
     Active Substance: SERTRALINE HYDROCHLORIDE
     Indication: Depression
     Dosage: 50 MILLIGRAM, DAILY
     Route: 048
     Dates: start: 20180427, end: 20230512
  2. XARELTO [Interacting]
     Active Substance: RIVAROXABAN
     Indication: Atrial fibrillation
     Dosage: 15 MILLIGRAM, DAILY
     Route: 048
     Dates: start: 202208, end: 20230512

REACTIONS (1)
  - Lower gastrointestinal haemorrhage [Recovered/Resolved]

NARRATIVE: CASE EVENT DATE: 20230512
